FAERS Safety Report 4300807-5 (Version None)
Quarter: 2004Q1

REPORT INFORMATION
  Report Type: 
  Country: None (occurrence: None)
  Receive Date: 20040218
  Receipt Date: 20040204
  Transmission Date: 20041129
  Serious: Yes (Hospitalization, Other)
  Sender: FDA-Public Use
  Company Number: USA030948679

PATIENT
  Age: 83 Year
  Sex: Female
  Weight: 59 kg

DRUGS (17)
  1. FORTEO [Suspect]
     Indication: OSTEOPOROSIS
     Dosage: 20 UG/DAY
     Dates: start: 20030301
  2. PREVACID [Concomitant]
  3. FUROSEMIDE [Concomitant]
  4. SPIRONOLACTONE [Concomitant]
  5. LODRONAT (CLODRONATE DISODIUM) [Concomitant]
  6. ZOLOFT [Concomitant]
  7. PLAVIX [Concomitant]
  8. KLOR-CON [Concomitant]
  9. DEXTRAL [Concomitant]
  10. CELEBREX [Concomitant]
  11. NITROQUICK (GLYCERYL TRINITRATE) [Concomitant]
  12. NITROGLYCERIN [Concomitant]
  13. LOTREL [Concomitant]
  14. TOPROL-XL [Concomitant]
  15. VICODIN [Concomitant]
  16. VITAMIN E [Concomitant]
  17. VITAMIN C [Concomitant]

REACTIONS (2)
  - CARBOHYDRATE ANTIGEN 125 INCREASED [None]
  - SPINAL LAMINECTOMY [None]
